FAERS Safety Report 8237359-3 (Version None)
Quarter: 2012Q1

REPORT INFORMATION
  Report Type: 
  Country: None (occurrence: None)
  Receive Date: 20120327
  Receipt Date: 20120315
  Transmission Date: 20120608
  Serious: Yes (Death, Life-Threatening)
  Sender: FDA-Public Use
  Company Number: JP-SANOFI-AVENTIS-2012SA011762

PATIENT
  Age: 79 Year
  Sex: Male
  Weight: 52 kg

DRUGS (22)
  1. TAXOTERE [Suspect]
     Indication: PROSTATE CANCER
     Route: 041
     Dates: start: 20120113, end: 20120201
  2. CLARITHROMYCIN [Concomitant]
     Indication: HYPERTENSION
     Route: 048
     Dates: start: 20100101
  3. ALL OTHER THERAPEUTIC PRODUCTS [Concomitant]
     Indication: HYPERTENSION
     Route: 055
     Dates: start: 20100101
  4. ASPIRIN [Concomitant]
     Indication: HYPERTENSION
     Route: 048
     Dates: start: 20100101
  5. LAXATIVES [Concomitant]
     Indication: HYPERTENSION
     Dosage: 2 T X 1 TIMES
     Route: 048
     Dates: start: 20100101
  6. ZOLPIDEM [Concomitant]
  7. DEXAMETHASONE SODIUM PHOSPHATE [Concomitant]
     Indication: PROSTATE CANCER
     Route: 048
     Dates: start: 20110901
  8. NEUTROGIN [Concomitant]
  9. MINOCYCLINE HCL [Concomitant]
  10. ETODOLAC [Concomitant]
  11. TAXOTERE [Suspect]
     Route: 041
     Dates: start: 20110913
  12. ANTIBIOTICS [Concomitant]
     Dates: start: 20120118
  13. MEROPENEM [Concomitant]
  14. TAXOTERE [Suspect]
     Route: 041
     Dates: start: 20111027
  15. CLARITHROMYCIN [Concomitant]
     Indication: ASTHMA
     Route: 048
     Dates: start: 20100101
  16. LAXATIVES [Concomitant]
     Indication: ASTHMA
     Dosage: 2 T X 1 TIMES
     Route: 048
     Dates: start: 20100101
  17. ALL OTHER THERAPEUTIC PRODUCTS [Concomitant]
     Indication: ASTHMA
     Route: 055
     Dates: start: 20100101
  18. TORSEMIDE [Concomitant]
     Indication: PROSTATE CANCER
     Route: 048
     Dates: start: 20110101
  19. ASPIRIN [Concomitant]
     Indication: ASTHMA
     Route: 048
     Dates: start: 20100101
  20. LANSOPRAZOLE [Concomitant]
     Indication: ASTHMA
     Route: 048
     Dates: start: 20100101
  21. LANSOPRAZOLE [Concomitant]
     Indication: HYPERTENSION
     Route: 048
     Dates: start: 20100101
  22. MUCOSTA [Concomitant]

REACTIONS (1)
  - INTERSTITIAL LUNG DISEASE [None]
